FAERS Safety Report 11562112 (Version 2)
Quarter: 2015Q4

REPORT INFORMATION
  Report Type: Report from Study
  Country: GB (occurrence: GB)
  Receive Date: 20150928
  Receipt Date: 20151002
  Transmission Date: 20160304
  Serious: Yes (Other)
  Sender: FDA-Public Use
  Company Number: PHFR2015GB006954

PATIENT
  Age: 39 Year
  Sex: Female

DRUGS (1)
  1. GILENYA [Suspect]
     Active Substance: FINGOLIMOD HYDROCHLORIDE
     Indication: RELAPSING-REMITTING MULTIPLE SCLEROSIS
     Dosage: 0.5 MG, UNK
     Route: 065
     Dates: start: 20130910

REACTIONS (21)
  - Muscle spasms [Unknown]
  - Dysphemia [Unknown]
  - Libido decreased [Unknown]
  - Musculoskeletal stiffness [Unknown]
  - Urinary hesitation [Unknown]
  - Hypoaesthesia [Unknown]
  - Gait disturbance [Unknown]
  - Eye movement disorder [Unknown]
  - Memory impairment [Unknown]
  - Urinary retention [Unknown]
  - Central nervous system lesion [Unknown]
  - Pain in jaw [Unknown]
  - Muscular weakness [Unknown]
  - Paraesthesia [Unknown]
  - Proctalgia [Unknown]
  - Fracture [Unknown]
  - Fall [Unknown]
  - Sensory disturbance [Unknown]
  - Anxiety [Unknown]
  - Migraine [Unknown]
  - Dry mouth [Unknown]

NARRATIVE: CASE EVENT DATE: 20130910
